FAERS Safety Report 20827670 (Version 2)
Quarter: 2022Q2

REPORT INFORMATION
  Report Type: Spontaneous
  Country: JP (occurrence: JP)
  Receive Date: 20220513
  Receipt Date: 20220531
  Transmission Date: 20220721
  Serious: Yes (Other)
  Sender: FDA-Public Use
  Company Number: JP-GILEAD-2022-0580763

PATIENT
  Age: 35 Year
  Sex: Female
  Weight: 48 kg

DRUGS (25)
  1. VEKLURY [Suspect]
     Active Substance: REMDESIVIR
     Indication: COVID-19
     Dosage: 10 MG
     Route: 042
     Dates: start: 20220503, end: 20220503
  2. CEFOTAXIME SODIUM [Concomitant]
     Active Substance: CEFOTAXIME SODIUM
     Dosage: UNK
  3. NICORANDIL [Concomitant]
     Active Substance: NICORANDIL
     Dosage: 5 MG, BID
  4. NICORANDIL [Concomitant]
     Active Substance: NICORANDIL
     Dosage: UNK, PRN
  5. HERBESSER [Concomitant]
     Active Substance: DILTIAZEM HYDROCHLORIDE
     Dosage: 100 MG, BID
  6. ACOTIAMIDE HYDROCHLORIDE [Concomitant]
     Active Substance: ACOTIAMIDE HYDROCHLORIDE
     Dosage: 100 MG, TID
  7. NAUZELIN [Concomitant]
     Active Substance: DOMPERIDONE
     Dosage: 10 MG, BID
  8. GASMOTIN [MOSAPRIDE CITRATE] [Concomitant]
     Dosage: 5 MG, BID
  9. REBAMIPIDE [Concomitant]
     Active Substance: REBAMIPIDE
     Dosage: 100 MG, BID
  10. GASCON [DIMETICONE] [Concomitant]
     Dosage: 40 MG, BID
  11. RABEPRAZOLE SODIUM [Concomitant]
     Active Substance: RABEPRAZOLE SODIUM
     Dosage: 10 MG, QD
  12. SUMATRIPTAN SUCCINATE [Concomitant]
     Active Substance: SUMATRIPTAN SUCCINATE
     Dosage: 50 MG, PRN
  13. PL [Concomitant]
     Active Substance: ACETAMINOPHEN\CAFFEINE\PROMETHAZINE\SALICYLAMIDE
     Dosage: 1 G, TID
  14. MIYA-BM [Concomitant]
     Active Substance: CLOSTRIDIUM BUTYRICUM SPORES STRAIN M-55
     Dosage: 20 MG, TID
  15. CALONAL [Concomitant]
     Active Substance: ACETAMINOPHEN
     Dosage: 1 DOSAGE FORM, TID
  16. LYRICA [Concomitant]
     Active Substance: PREGABALIN
     Dosage: 75 MG, BID
  17. LOXONIN [LOXOPROFEN SODIUM] [Concomitant]
     Dosage: 60 MG, TID
  18. DIENOGEST [Concomitant]
     Active Substance: DIENOGEST
     Dosage: 1 DOSAGE FORM, BID
  19. MAGNESIUM OXIDE [Concomitant]
     Active Substance: MAGNESIUM OXIDE
     Dosage: 1 DOSAGE FORM, BID
  20. CERCINE [Concomitant]
     Active Substance: DIAZEPAM
     Dosage: 5 MG, BID
  21. BROMAZEPAM [Concomitant]
     Active Substance: BROMAZEPAM
     Dosage: 5 MG, BID
  22. REFLEX [Concomitant]
     Active Substance: MIRTAZAPINE
     Dosage: 45 MG, QD
  23. PRAMIPEXOLE [Concomitant]
     Active Substance: PRAMIPEXOLE
     Dosage: 0.125 MG, QD
  24. BILASTINE [Concomitant]
     Active Substance: BILASTINE
     Dosage: 20 MG, QD
  25. ALLELOCK [Concomitant]
     Active Substance: OLOPATADINE HYDROCHLORIDE
     Dosage: 5 MG, BID

REACTIONS (4)
  - Blood pressure decreased [Recovered/Resolved]
  - Dyspnoea [Recovered/Resolved]
  - Dizziness [Recovered/Resolved]
  - Nausea [Recovered/Resolved]

NARRATIVE: CASE EVENT DATE: 20220503
